FAERS Safety Report 8197814-1 (Version None)
Quarter: 2012Q1

REPORT INFORMATION
  Report Type: 
  Country: None (occurrence: None)
  Receive Date: 20120309
  Receipt Date: 20120305
  Transmission Date: 20120608
  Serious: Yes (Death, Life-Threatening, Hospitalization)
  Sender: FDA-Public Use
  Company Number: RO-ABBOTT-11P-135-0836232-00

PATIENT
  Sex: Female
  Weight: 80 kg

DRUGS (8)
  1. LISINOPRIL [Concomitant]
     Dates: start: 20110324, end: 20110326
  2. PREDNISONE [Suspect]
     Indication: RHEUMATOID ARTHRITIS
     Dates: start: 20031020, end: 20110326
  3. LEFLUNOMIDE [Concomitant]
     Indication: RHEUMATOID ARTHRITIS
     Route: 048
     Dates: start: 20091001
  4. METHOTREXATE [Concomitant]
     Indication: RHEUMATOID ARTHRITIS
     Dosage: 20 MG/WEEK
     Route: 030
     Dates: start: 20080101
  5. BONIVA [Concomitant]
     Dates: start: 20081210, end: 20110326
  6. AMLODIPINE [Concomitant]
     Dates: start: 20110324, end: 20110326
  7. METOPROLOL SUCCINATE [Concomitant]
     Dates: start: 20030530, end: 20110326
  8. HUMIRA [Suspect]
     Indication: RHEUMATOID ARTHRITIS
     Route: 058
     Dates: start: 20100216, end: 20110326

REACTIONS (13)
  - HEMIPARESIS [None]
  - LUMBAR VERTEBRAL FRACTURE [None]
  - CARDIAC ARREST [None]
  - SECONDARY HYPERTENSION [None]
  - CERVICAL VERTEBRAL FRACTURE [None]
  - SPEECH DISORDER [None]
  - DISORIENTATION [None]
  - RENAL FAILURE [None]
  - HEART INJURY [None]
  - INFLAMMATION [None]
  - MEMORY IMPAIRMENT [None]
  - THROMBOSIS [None]
  - CARDIOGENIC SHOCK [None]
